FAERS Safety Report 19715437 (Version 1)
Quarter: 2021Q3

REPORT INFORMATION
  Report Type: Spontaneous
  Country: GB (occurrence: GB)
  Receive Date: 20210818
  Receipt Date: 20210818
  Transmission Date: 20211014
  Serious: Yes (Hospitalization)
  Sender: FDA-Public Use
  Company Number: GB-TEVA-2021-GB-1943537

PATIENT
  Sex: Male

DRUGS (11)
  1. FOLIC ACID. [Concomitant]
     Active Substance: FOLIC ACID
     Dosage: 5 MILLIGRAM DAILY;
  2. ONDANSETRON [Concomitant]
     Active Substance: ONDANSETRON
     Dosage: 12 MILLIGRAM DAILY;
  3. FLUOXETINE [Concomitant]
     Active Substance: FLUOXETINE HYDROCHLORIDE
     Dosage: 60 MILLIGRAM DAILY;
  4. LOPERAMIDE [Concomitant]
     Active Substance: LOPERAMIDE
     Dosage: 8 MILLIGRAM DAILY;
  5. DUORESP SPIROMAX [Concomitant]
     Active Substance: BUDESONIDE\FORMOTEROL
     Dosage: 4 DOSAGE FORMS DAILY; 160MICROGRAMS/DOSE / 4.5MICROGRAMS/DOSE,  TWO PUFFS TO BE INHALED TWICE A DAY
     Route: 055
  6. NEFOPAM [Concomitant]
     Active Substance: NEFOPAM
     Dosage: 90 MILLIGRAM DAILY;
  7. PRAMIPEXOLE. [Concomitant]
     Active Substance: PRAMIPEXOLE
     Dosage: 88 MICROGRAM DAILY; AT NIGHT AS DIRECTED
  8. PREGABALIN. [Concomitant]
     Active Substance: PREGABALIN
     Dosage: 600 MILLIGRAM DAILY;
  9. LONGTEC [Concomitant]
     Active Substance: OXYCODONE HYDROCHLORIDE
     Dosage: 40 MILLIGRAM DAILY;
  10. WARFARIN [Suspect]
     Active Substance: WARFARIN
     Indication: ATRIAL FIBRILLATION
     Dosage: 2 MILLIGRAM DAILY;
  11. LAMOTRIGINE. [Concomitant]
     Active Substance: LAMOTRIGINE
     Dosage: 100 MILLIGRAM DAILY;

REACTIONS (1)
  - Epistaxis [Recovered/Resolved]
